FAERS Safety Report 15094430 (Version 1)
Quarter: 2018Q2

REPORT INFORMATION
  Report Type: Spontaneous
  Country: IT (occurrence: IT)
  Receive Date: 20180630
  Receipt Date: 20180630
  Transmission Date: 20180711
  Serious: Yes (Other)
  Sender: FDA-Public Use
  Company Number: IT-AUROBINDO-AUR-APL-2018-033424

PATIENT
  Age: 85 Year
  Sex: Female

DRUGS (6)
  1. ALLOPURINOL SANDOZ [Concomitant]
     Active Substance: ALLOPURINOL
     Indication: BLOOD URIC ACID INCREASED
     Dosage: 1 DOSAGE FORM
     Route: 048
  2. LASIX [Concomitant]
     Active Substance: FUROSEMIDE
     Indication: HYPERTENSION
     Dosage: 2 DOSAGE FORM
     Route: 048
  3. GENTALYN [Concomitant]
     Active Substance: GENTAMICIN SULFATE
     Indication: ERYSIPELAS
     Dosage: 2 DOSAGE FORM
     Route: 003
     Dates: start: 20180525, end: 20180527
  4. MADOPAR [Concomitant]
     Active Substance: BENSERAZIDE HYDROCHLORIDE\LEVODOPA
     Indication: PARKINSONISM
     Dosage: 4 DOSAGE FORM
     Route: 048
  5. AMOXICILLIN+CLAVULANIC ACID [Suspect]
     Active Substance: AMOXICILLIN\CLAVULANIC ACID
     Indication: ERYSIPELAS
     Dosage: 3 GRAM, DAILY
     Route: 048
     Dates: start: 20180525, end: 20180527
  6. RANITIDINE HYDROCHLORIDE. [Concomitant]
     Active Substance: RANITIDINE HYDROCHLORIDE
     Indication: GASTRIC ULCER
     Dosage: 1 DOSAGE FORM
     Route: 048

REACTIONS (3)
  - Drug ineffective [Unknown]
  - Urticaria [Unknown]
  - Exfoliative rash [Unknown]

NARRATIVE: CASE EVENT DATE: 20180527
